FAERS Safety Report 19652126 (Version 5)
Quarter: 2022Q1

REPORT INFORMATION
  Report Type: Report from Study
  Country: US (occurrence: None)
  Receive Date: 20210803
  Receipt Date: 20220117
  Transmission Date: 20220423
  Serious: Yes (Hospitalization)
  Sender: FDA-Public Use
  Company Number: US-ROCHE-2878744

PATIENT
  Age: 57 Year
  Sex: Male
  Weight: 107 kg

DRUGS (4)
  1. ATEZOLIZUMAB [Suspect]
     Active Substance: ATEZOLIZUMAB
     Indication: Adenocarcinoma of colon
     Dosage: ON 21/JUN/2021, RECEIVED LAST DOSE OF ATEZOLIZUMAB 840 MG?11/AUG/2021, HE RECEIVED LAST DOSE OF ATEZ
     Route: 041
     Dates: start: 20210510
  2. OXALIPLATIN [Suspect]
     Active Substance: OXALIPLATIN
     Indication: Adenocarcinoma of colon
     Dosage: ON 21/JUN/2021, RECEIVED LAST DOSE OF OXALIPLATIN, TOTAL DOSE ADMINISTERED 201 MG?09/AUG/2021, HE RE
     Route: 042
     Dates: start: 20210510
  3. LEUCOVORIN CALCIUM [Suspect]
     Active Substance: LEUCOVORIN CALCIUM
     Indication: Adenocarcinoma of colon
     Dosage: ON 21/JUN/2021, RECEIVED LAST DOSE OF CALCIUM FOLINATE, TOTAL DOSE ADMINISTERED 948 MG?09/AUG/2021,
     Route: 042
     Dates: start: 20210510
  4. FLUOROURACIL [Suspect]
     Active Substance: FLUOROURACIL
     Indication: Adenocarcinoma of colon
     Dosage: ON DAY 1 FOLLOWED BY 2400MG/M2 IV OVER 46 HOURS DAYS 1-3?ON 21/JUN/2021, RECEIVED LAST DOSE OF FLUOR
     Route: 040
     Dates: start: 20210510

REACTIONS (4)
  - Enterocolitis [Recovered/Resolved with Sequelae]
  - Abdominal pain [Recovered/Resolved with Sequelae]
  - Portal vein thrombosis [Recovering/Resolving]
  - Abdominal pain [Recovering/Resolving]

NARRATIVE: CASE EVENT DATE: 20210630
